FAERS Safety Report 19731889 (Version 3)
Quarter: 2022Q4

REPORT INFORMATION
  Report Type: Spontaneous
  Country: US (occurrence: US)
  Receive Date: 20210820
  Receipt Date: 20221205
  Transmission Date: 20230113
  Serious: Yes (Hospitalization, Other)
  Sender: FDA-Public Use
  Company Number: US-ELI_LILLY_AND_COMPANY-US202108004993

PATIENT
  Sex: Female
  Weight: 98.866 kg

DRUGS (9)
  1. BASAGLAR [Suspect]
     Active Substance: INSULIN GLARGINE
     Indication: Type 2 diabetes mellitus
     Dosage: UNK, UNKNOWN
     Route: 065
  2. BASAGLAR [Suspect]
     Active Substance: INSULIN GLARGINE
     Indication: Hyperglycaemia
     Dosage: 40 U, QHS
     Route: 030
     Dates: start: 20200825
  3. BASAGLAR [Suspect]
     Active Substance: INSULIN GLARGINE
     Indication: Hyperglycaemia
     Dosage: 40 U, QHS
     Route: 030
     Dates: start: 20200825
  4. BASAGLAR [Suspect]
     Active Substance: INSULIN GLARGINE
     Dosage: 40 U, DAILY
     Route: 065
  5. HUMALOG [Suspect]
     Active Substance: INSULIN LISPRO
     Indication: Type 2 diabetes mellitus
     Dosage: 40 U, QHS
     Route: 030
     Dates: start: 20141112, end: 202004
  6. HUMALOG [Suspect]
     Active Substance: INSULIN LISPRO
     Indication: Hyperglycaemia
  7. LANTUS [Suspect]
     Active Substance: INSULIN GLARGINE
     Indication: Type 2 diabetes mellitus
     Dosage: UNK, UNKNOWN
     Route: 065
  8. ACETAMINOPHEN\METHOCARBAMOL [Concomitant]
     Active Substance: ACETAMINOPHEN\METHOCARBAMOL
     Indication: Back pain
     Dosage: UNK, UNKNOWN
     Route: 065
  9. NOVOLOG [Concomitant]
     Active Substance: INSULIN ASPART
     Indication: Type 2 diabetes mellitus
     Dosage: 10 U, OTHER, IF BLOOD SUGAR IS OVER 130
     Route: 065

REACTIONS (15)
  - Intervertebral disc injury [Unknown]
  - Colon cancer [Recovered/Resolved]
  - Cerebrovascular accident [Unknown]
  - Carpal tunnel syndrome [Recovered/Resolved]
  - Urinary incontinence [Unknown]
  - Back pain [Unknown]
  - Angiopathy [Unknown]
  - Peripheral vascular disorder [Unknown]
  - Obesity [Unknown]
  - Uterine malposition [Unknown]
  - Fungal infection [Unknown]
  - Urinary tract infection [Unknown]
  - Injection site haemorrhage [Recovered/Resolved]
  - Incorrect dose administered [Unknown]
  - Intentional dose omission [Unknown]

NARRATIVE: CASE EVENT DATE: 20120101
